FAERS Safety Report 16818584 (Version 1)
Quarter: 2019Q3

REPORT INFORMATION
  Report Type: Spontaneous
  Country: US (occurrence: US)
  Receive Date: 20190917
  Receipt Date: 20190917
  Transmission Date: 20191005
  Serious: No
  Sender: FDA-Public Use
  Company Number: US-JNJFOC-20190904033

PATIENT
  Age: 58 Year
  Sex: Female
  Weight: 72.64 kg

DRUGS (10)
  1. TRAZODONE [Concomitant]
     Active Substance: TRAZODONE HYDROCHLORIDE
  2. PANTOPRAZOLE [Concomitant]
     Active Substance: PANTOPRAZOLE
  3. SPRAVATO [Suspect]
     Active Substance: ESKETAMINE
     Indication: DEPRESSION
  4. ESTRACE [Concomitant]
     Active Substance: ESTRADIOL
  5. LISINOPRIL. [Concomitant]
     Active Substance: LISINOPRIL
  6. ZALEPLON. [Concomitant]
     Active Substance: ZALEPLON
  7. BUSPIRONE [Concomitant]
     Active Substance: BUSPIRONE HYDROCHLORIDE
  8. REXULTI [Concomitant]
     Active Substance: BREXPIPRAZOLE
  9. XANAX [Concomitant]
     Active Substance: ALPRAZOLAM
  10. OXYBUTYNIN. [Concomitant]
     Active Substance: OXYBUTYNIN CHLORIDE

REACTIONS (1)
  - Product administration error [Unknown]

NARRATIVE: CASE EVENT DATE: 20190903
